FAERS Safety Report 24171745 (Version 2)
Quarter: 2024Q3

REPORT INFORMATION
  Report Type: Report from Study
  Country: US (occurrence: US)
  Receive Date: 20240805
  Receipt Date: 20240810
  Transmission Date: 20241017
  Serious: Yes (Hospitalization, Other)
  Sender: ABBVIE
  Company Number: US-ABBVIE-5863884

PATIENT
  Age: 76 Year
  Sex: Female
  Weight: 81.647 kg

DRUGS (2)
  1. CREON [Suspect]
     Active Substance: PANCRELIPASE AMYLASE\PANCRELIPASE LIPASE\PANCRELIPASE PROTEASE
     Indication: Pancreatic failure
     Dosage: 2 CAPS EACH AND 2 CAPS EACH SNACK
     Route: 048
     Dates: start: 20230930
  2. PANTOPRAZOLE [Concomitant]
     Active Substance: PANTOPRAZOLE
     Indication: Dyspepsia

REACTIONS (7)
  - Joint dislocation [Recovered/Resolved]
  - Fall [Recovered/Resolved]
  - Pain [Recovered/Resolved]
  - Rib fracture [Recovered/Resolved]
  - Foot fracture [Recovered/Resolved]
  - Diarrhoea [Recovered/Resolved]
  - Clavicle fracture [Unknown]

NARRATIVE: CASE EVENT DATE: 20230901
